FAERS Safety Report 16760266 (Version 1)
Quarter: 2019Q3

REPORT INFORMATION
  Report Type: Spontaneous
  Country: GB (occurrence: GB)
  Receive Date: 20190830
  Receipt Date: 20190830
  Transmission Date: 20191005
  Serious: Yes (Other)
  Sender: FDA-Public Use
  Company Number: GB-PFIZER INC-2019372773

PATIENT
  Age: 30 Year
  Sex: Female
  Weight: 60 kg

DRUGS (3)
  1. DALTEPARIN SODIUM [Suspect]
     Active Substance: DALTEPARIN SODIUM
     Dosage: UNK
     Dates: start: 20180926
  2. FOLIC ACID. [Concomitant]
     Active Substance: FOLIC ACID
     Dosage: UNK
  3. APIXABAN [Suspect]
     Active Substance: APIXABAN
     Indication: PULMONARY EMBOLISM
     Dosage: 10 MG, 1X/DAY (QD)
     Dates: start: 20171208, end: 20180926

REACTIONS (3)
  - Pre-eclampsia [Unknown]
  - Gestational diabetes [Unknown]
  - Maternal exposure during pregnancy [Unknown]
